FAERS Safety Report 6626666-3 (Version None)
Quarter: 2010Q1

REPORT INFORMATION
  Report Type: 
  Country: None (occurrence: None)
  Receive Date: 20100305
  Receipt Date: 20100225
  Transmission Date: 20100710
  Serious: Yes (Hospitalization, Other)
  Sender: FDA-Public Use
  Company Number: 516385

PATIENT
  Age: 26 Year
  Sex: Male

DRUGS (6)
  1. VINCRISTINE SULFATE [Suspect]
     Indication: DRUG USE FOR UNKNOWN INDICATION
  2. ASPIRIN [Concomitant]
  3. AZATHIOPRINE [Concomitant]
  4. CYCLOSPORINE [Concomitant]
  5. DILTIAZEM HCL [Concomitant]
  6. SIMVASTATIN [Concomitant]

REACTIONS (6)
  - ABDOMINAL DISTENSION [None]
  - ABDOMINAL PAIN [None]
  - CONSTIPATION [None]
  - HYPOAESTHESIA [None]
  - ILEUS PARALYTIC [None]
  - PARAESTHESIA [None]
